FAERS Safety Report 24386000 (Version 1)
Quarter: 2024Q4

REPORT INFORMATION
  Report Type: Spontaneous
  Country: US (occurrence: None)
  Receive Date: 20241001
  Receipt Date: 20241001
  Transmission Date: 20250115
  Serious: Yes (Life-Threatening, Hospitalization)
  Sender: Public
  Company Number: None

PATIENT
  Age: 60 Year
  Sex: Female

DRUGS (1)
  1. YESCARTA [Suspect]
     Active Substance: AXICABTAGENE CILOLEUCEL
     Indication: Diffuse large B-cell lymphoma
     Dates: start: 20240904, end: 20240904

REACTIONS (3)
  - Immune effector cell-associated neurotoxicity syndrome [None]
  - Pyrexia [None]
  - Encephalopathy [None]

NARRATIVE: CASE EVENT DATE: 20240910
